FAERS Safety Report 8864390 (Version 1)
Quarter: 2012Q4

REPORT INFORMATION
  Report Type: 
  Country: US (occurrence: US)
  Receive Date: 20121024
  Receipt Date: 20121024
  Transmission Date: 20130627
  Serious: No
  Sender: FDA-Public Use
  Company Number: US-AMGEN-USASP2011067395

PATIENT
  Age: 45 Year
  Sex: Female

DRUGS (2)
  1. ENBREL [Suspect]
     Indication: PSORIASIS
     Dates: start: 20050720, end: 2008
  2. METHOTREXATE [Concomitant]
     Dosage: 1 mg, UNK

REACTIONS (2)
  - Alopecia [Recovered/Resolved]
  - Furuncle [Recovered/Resolved]
